FAERS Safety Report 23695505 (Version 2)
Quarter: 2025Q2

REPORT INFORMATION
  Report Type: Spontaneous
  Country: JP (occurrence: JP)
  Receive Date: 20240402
  Receipt Date: 20250516
  Transmission Date: 20250716
  Serious: No
  Sender: CHATTEM
  Company Number: JP-SA-2024SA089260

PATIENT
  Age: 42 Year
  Sex: Male

DRUGS (1)
  1. FEXOFENADINE HYDROCHLORIDE [Suspect]
     Active Substance: FEXOFENADINE HYDROCHLORIDE
     Indication: Rhinitis allergic
     Dosage: 2 DF, BID
     Route: 048
     Dates: start: 20240214, end: 20240218

REACTIONS (1)
  - Micturition disorder [Recovered/Resolved]

NARRATIVE: CASE EVENT DATE: 20240214
